FAERS Safety Report 18374901 (Version 2)
Quarter: 2020Q4

REPORT INFORMATION
  Report Type: Spontaneous
  Country: CA (occurrence: CA)
  Receive Date: 20201013
  Receipt Date: 20201118
  Transmission Date: 20210114
  Serious: Yes (Hospitalization, Other)
  Sender: FDA-Public Use
  Company Number: CA-SA-2020SA275247

PATIENT

DRUGS (27)
  1. ANTIACID [CALCIUM CARBONATE;MAGNESIUM CARBONATE;SODIUM BICARBONATE] [Concomitant]
     Dosage: SUSPENSION
     Route: 048
  2. CETIRIZINE [Concomitant]
     Active Substance: CETIRIZINE HYDROCHLORIDE
  3. POTASSIUM CHLORIDE. [Concomitant]
     Active Substance: POTASSIUM CHLORIDE
  4. MABCAMPATH [Suspect]
     Active Substance: ALEMTUZUMAB
     Indication: CHEMOTHERAPY
     Dosage: 30 MG
     Route: 058
     Dates: start: 2019, end: 2020
  5. DIMENHYDRINATE. [Concomitant]
     Active Substance: DIMENHYDRINATE
     Dosage: LIQUID INTRAVENOUS
     Route: 042
  6. HUMALOG [Concomitant]
     Active Substance: INSULIN LISPRO
  7. ISONIAZIDE [Concomitant]
     Active Substance: ISONIAZID
  8. HYDROMORPHONE [Concomitant]
     Active Substance: HYDROMORPHONE
  9. SULFAMETHOXAZOLE AND TRIMETHOPRIM [Concomitant]
     Active Substance: SULFAMETHOXAZOLE\TRIMETHOPRIM
     Dosage: SUSPENSION
     Route: 065
  10. ACETAMINOPHEN. [Concomitant]
     Active Substance: ACETAMINOPHEN
  11. ALLOPURINOL. [Concomitant]
     Active Substance: ALLOPURINOL
  12. CITALOPRAM [Concomitant]
     Active Substance: CITALOPRAM HYDROBROMIDE
     Route: 065
  13. DIGOXIN. [Concomitant]
     Active Substance: DIGOXIN
     Dosage: LIQUID
  14. MULTIVITAMINS;MINERALS [Concomitant]
     Dosage: PIECE, CHEWABLE
     Route: 048
  15. VITAMIN B12 [VITAMIN B12 NOS] [Concomitant]
     Active Substance: CYANOCOBALAMIN
  16. PREDNISONE. [Concomitant]
     Active Substance: PREDNISONE
  17. ENOXAPARIN [Concomitant]
     Active Substance: ENOXAPARIN
  18. POLYETHYLENE GLYCOL COMPOUND [Concomitant]
  19. TAZOCIN [Concomitant]
     Active Substance: PIPERACILLIN SODIUM\TAZOBACTAM SODIUM
     Route: 042
  20. VALACYCLOVIR [Concomitant]
     Active Substance: VALACYCLOVIR HYDROCHLORIDE
  21. BISOPROLOL [Concomitant]
     Active Substance: BISOPROLOL
  22. LANSOPRAZOLE. [Concomitant]
     Active Substance: LANSOPRAZOLE
  23. LEVOTHYROXINE. [Concomitant]
     Active Substance: LEVOTHYROXINE
  24. ZOPICLONE [Concomitant]
     Active Substance: ZOPICLONE
  25. PYRIDOXINE [Concomitant]
     Active Substance: PYRIDOXINE
  26. SYMBICORT [Concomitant]
     Active Substance: BUDESONIDE\FORMOTEROL FUMARATE DIHYDRATE
     Dosage: POWDER
  27. VANCOMYCIN [Concomitant]
     Active Substance: VANCOMYCIN

REACTIONS (2)
  - Cytomegalovirus infection [Not Recovered/Not Resolved]
  - Febrile neutropenia [Not Recovered/Not Resolved]

NARRATIVE: CASE EVENT DATE: 20200112
